FAERS Safety Report 6152939-7 (Version None)
Quarter: 2009Q2

REPORT INFORMATION
  Report Type: 
  Country: None (occurrence: None)
  Receive Date: 20090413
  Receipt Date: 20090406
  Transmission Date: 20091009
  Serious: Yes (Hospitalization)
  Sender: FDA-Public Use
  Company Number: JP-B.I. PHARMACEUTICALS,INC./RIDGEFIELD-2009-BP-02230NB

PATIENT
  Age: 65 Year
  Sex: Female

DRUGS (10)
  1. MICARDIS [Suspect]
     Indication: HYPERTENSION
     Dosage: 40MG
     Route: 048
     Dates: start: 20081122
  2. BAKTAR [Suspect]
     Indication: PNEUMOCYSTIS JIROVECI PNEUMONIA
     Dosage: 1ANZ
     Route: 048
  3. LASIX [Concomitant]
     Dosage: 80MG
     Route: 048
  4. ALOSITOL [Concomitant]
     Dosage: 50MG
     Route: 048
  5. ONEALFA [Concomitant]
     Dosage: .5MCG
     Route: 048
  6. FUNGIZONE [Concomitant]
     Dosage: 4ML
     Route: 048
  7. PREDONINE [Concomitant]
     Dosage: 5MG
     Route: 048
  8. PREDNISOLONE [Concomitant]
     Dosage: 4MG
     Route: 048
  9. NOVORAPID [Concomitant]
     Dosage: 6U
     Route: 058
  10. ALLOID G [Concomitant]
     Dosage: 45ML
     Route: 048

REACTIONS (2)
  - RED BLOOD CELL COUNT DECREASED [None]
  - WHITE BLOOD CELL COUNT DECREASED [None]
